FAERS Safety Report 9315650 (Version 1)
Quarter: 2013Q2

REPORT INFORMATION
  Report Type: Spontaneous
  Country: US (occurrence: US)
  Receive Date: 20130529
  Receipt Date: 20130529
  Transmission Date: 20140414
  Serious: Yes (Hospitalization)
  Sender: FDA-Public Use
  Company Number: PHHY2013US053484

PATIENT
  Age: 76 Year
  Sex: Female

DRUGS (2)
  1. ACETYLSALICYLIC ACID [Suspect]
     Route: 048
     Dates: start: 1970, end: 1970
  2. ALKA SELTZER [Suspect]

REACTIONS (1)
  - Ulcer haemorrhage [Recovered/Resolved]
